FAERS Safety Report 7134927-7 (Version None)
Quarter: 2010Q4

REPORT INFORMATION
  Report Type: 
  Country: None (occurrence: None)
  Receive Date: 20101203
  Receipt Date: 20101124
  Transmission Date: 20110411
  Serious: Yes (Other)
  Sender: FDA-Public Use
  Company Number: CA-JNJFOC-20101004544

PATIENT
  Sex: Female
  Weight: 92 kg

DRUGS (3)
  1. REMICADE [Suspect]
     Indication: PSORIATIC ARTHROPATHY
     Route: 042
  2. REMICADE [Suspect]
     Indication: RHEUMATOID ARTHRITIS
     Route: 042
  3. PREDNISONE [Suspect]
     Indication: ILL-DEFINED DISORDER

REACTIONS (3)
  - FALL [None]
  - OSTEOPOROSIS [None]
  - RIB FRACTURE [None]
